FAERS Safety Report 5509546-6 (Version None)
Quarter: 2007Q4

REPORT INFORMATION
  Report Type: 
  Country: None (occurrence: None)
  Receive Date: 20071029
  Receipt Date: 20070828
  Transmission Date: 20080405
  Serious: No
  Sender: FDA-Public Use
  Company Number: 013028

PATIENT
  Sex: Female

DRUGS (1)
  1. PRIALT [Suspect]
     Indication: ACCIDENTAL EXPOSURE
     Dosage: OPHTHALMIC
     Route: 047

REACTIONS (3)
  - ABNORMAL SENSATION IN EYE [None]
  - ACCIDENTAL EXPOSURE [None]
  - OCULAR HYPERAEMIA [None]
